FAERS Safety Report 8388156-X (Version None)
Quarter: 2012Q2

REPORT INFORMATION
  Report Type: 
  Country: None (occurrence: None)
  Receive Date: 20120525
  Receipt Date: 20120517
  Transmission Date: 20120825
  Serious: Yes (Hospitalization)
  Sender: FDA-Public Use
  Company Number: IE-MEDIMMUNE-MEDI-0014788

PATIENT
  Age: 8 Month
  Sex: Male

DRUGS (1)
  1. SYNAGIS [Suspect]
     Indication: PREMATURE BABY
     Route: 030
     Dates: start: 20111020

REACTIONS (4)
  - VIRAL INFECTION [None]
  - BRONCHIOLITIS [None]
  - PARAINFLUENZAE VIRUS INFECTION [None]
  - METAPNEUMOVIRUS INFECTION [None]
